FAERS Safety Report 11988022 (Version 1)
Quarter: 2016Q1

REPORT INFORMATION
  Report Type: Spontaneous
  Country: US (occurrence: None)
  Receive Date: 20160201
  Receipt Date: 20160201
  Transmission Date: 20160526
  Serious: No
  Sender: FDA-Public Use
  Company Number: None

PATIENT
  Age: 23 Year
  Sex: Female
  Weight: 52.16 kg

DRUGS (3)
  1. EFUDEX [Suspect]
     Active Substance: FLUOROURACIL
     Indication: ANOGENITAL WARTS
     Route: 067
  2. SYNTHROID [Concomitant]
     Active Substance: LEVOTHYROXINE SODIUM
  3. ESTROGEN [Concomitant]
     Active Substance: ESTRONE\SUS SCROFA OVARY

REACTIONS (9)
  - Atrophy [None]
  - Cervical dysplasia [None]
  - Genito-pelvic pain/penetration disorder [None]
  - Intentional product misuse [None]
  - Smear cervix abnormal [None]
  - Pain [None]
  - Nerve injury [None]
  - Loss of employment [None]
  - Sexual dysfunction [None]

NARRATIVE: CASE EVENT DATE: 20090601
